FAERS Safety Report 6081804-9 (Version None)
Quarter: 2009Q1

REPORT INFORMATION
  Report Type: 
  Country: None (occurrence: None)
  Receive Date: 20090126
  Receipt Date: 20080501
  Transmission Date: 20090719
  Serious: Yes (Other)
  Sender: FDA-Public Use
  Company Number: WAES 0805USA00426

PATIENT
  Sex: Male

DRUGS (1)
  1. INVANZ [Suspect]
     Indication: DIABETIC FOOT INFECTION
     Dosage: 500 MG/IV
     Route: 042

REACTIONS (1)
  - CONVULSION [None]
